FAERS Safety Report 20335455 (Version 1)
Quarter: 2022Q1

REPORT INFORMATION
  Report Type: Spontaneous
  Country: None (occurrence: US)
  Receive Date: 20220114
  Receipt Date: 20220114
  Transmission Date: 20220423
  Serious: No
  Sender: FDA-Public Use
  Company Number: US-SERB S.A.S.-2123932

PATIENT
  Sex: Female

DRUGS (1)
  1. CYANOKIT [Suspect]
     Active Substance: HYDROXOCOBALAMIN
     Indication: Gas poisoning
     Route: 028

REACTIONS (2)
  - Chromaturia [Unknown]
  - Incorrect route of product administration [Unknown]
